FAERS Safety Report 6924323-7 (Version None)
Quarter: 2010Q3

REPORT INFORMATION
  Report Type: 
  Country: None (occurrence: None)
  Receive Date: 20100811
  Receipt Date: 20100811
  Transmission Date: 20110219
  Serious: No
  Sender: FDA-Public Use
  Company Number: None

PATIENT
  Age: 54 Year
  Sex: Male
  Weight: 100.6985 kg

DRUGS (1)
  1. ZYVOX [Suspect]
     Indication: OSTEOMYELITIS
     Dosage: 600 MG TWICE DAILY PO
     Route: 048
     Dates: start: 20100711, end: 20100802

REACTIONS (2)
  - CARDIAC FAILURE ACUTE [None]
  - PANCYTOPENIA [None]
